FAERS Safety Report 6213202-9 (Version None)
Quarter: 2009Q2

REPORT INFORMATION
  Report Type: 
  Country: None (occurrence: None)
  Receive Date: 20090602
  Receipt Date: 20090602
  Transmission Date: 20091009
  Serious: Yes (Hospitalization)
  Sender: FDA-Public Use
  Company Number: None

PATIENT
  Age: 58 Year
  Sex: Male
  Weight: 51.7101 kg

DRUGS (1)
  1. ONTAK [Suspect]
     Indication: PANCREATIC CARCINOMA METASTATIC
     Dosage: 943 MCG ONCE IV DRIP
     Route: 041
     Dates: start: 20090515, end: 20090515

REACTIONS (2)
  - DEEP VEIN THROMBOSIS [None]
  - HYPOTENSION [None]
